FAERS Safety Report 8209129-3 (Version None)
Quarter: 2012Q1

REPORT INFORMATION
  Report Type: 
  Country: None (occurrence: None)
  Receive Date: 20120314
  Receipt Date: 20100927
  Transmission Date: 20120608
  Serious: Yes (Other)
  Sender: FDA-Public Use
  Company Number: US-BAYER-201033819NA

PATIENT
  Age: 26 Year
  Sex: Female
  Weight: 49.887 kg

DRUGS (5)
  1. YAZ [Suspect]
     Indication: ACNE
     Route: 048
  2. YASMIN [Suspect]
     Indication: ACNE
  3. YASMIN [Suspect]
     Indication: CONTRACEPTION
     Dosage: UNK
     Route: 048
     Dates: start: 20050810, end: 20080626
  4. DROSPIRENONE AND ETHINYL ESTRADIOL [Suspect]
     Indication: CONTRACEPTION
     Dosage: UNK
     Route: 048
     Dates: start: 20080122, end: 20090714
  5. DROSPIRENONE AND ETHINYL ESTRADIOL [Suspect]
     Indication: ACNE

REACTIONS (8)
  - ABDOMINAL PAIN UPPER [None]
  - PAIN [None]
  - INJURY [None]
  - FLANK PAIN [None]
  - CHOLECYSTITIS CHRONIC [None]
  - CHOLELITHIASIS [None]
  - CHOLECYSTITIS [None]
  - BILIARY COLIC [None]
